FAERS Safety Report 7577502 (Version 4)
Quarter: 2013Q2

REPORT INFORMATION
  Report Type: Report from Study
  Country: US (occurrence: US)
  Receive Date: 20100909
  Receipt Date: 20130408
  Transmission Date: 20140414
  Serious: Yes (Hospitalization, Other)
  Sender: FDA-Public Use
  Company Number: US-BAYER-201030676NA

PATIENT
  Age: 65 Year
  Sex: Male
  Weight: 70 kg

DRUGS (3)
  1. SORAFENIB (RAF KINASE INHIBITOR) [Suspect]
     Indication: MYELODYSPLASTIC SYNDROME
     Dosage: 400 MG, BID
     Route: 048
     Dates: start: 20100723, end: 20100811
  2. PRILOSEC [Concomitant]
     Dosage: OTC 1 TABLET DAILY
     Route: 048
     Dates: start: 20100723
  3. ALLEGRA-D [FEXOFENADINE HYDROCHLORIDE,PSEUDOEPHEDRINE] [Concomitant]
     Dosage: 1 TABLET DAILY
     Route: 048

REACTIONS (2)
  - Febrile neutropenia [Unknown]
  - Myositis [Recovered/Resolved]
